FAERS Safety Report 9021743 (Version 1)
Quarter: 2013Q1

REPORT INFORMATION
  Report Type: Spontaneous
  Country: None (occurrence: US)
  Receive Date: 20130119
  Receipt Date: 20130119
  Transmission Date: 20140127
  Serious: No
  Sender: FDA-Public Use
  Company Number: US-ALLERGAN-1206055US

PATIENT
  Age: 37 Year
  Sex: Female

DRUGS (1)
  1. BOTOX COSMETIC [Suspect]
     Indication: SKIN WRINKLING
     Dosage: UNK
     Route: 030
     Dates: start: 201111, end: 201111

REACTIONS (4)
  - Alopecia [Not Recovered/Not Resolved]
  - Erythema [Unknown]
  - Burning sensation [Recovering/Resolving]
  - Pruritus [Recovering/Resolving]
